FAERS Safety Report 4700485-7 (Version None)
Quarter: 2005Q2

REPORT INFORMATION
  Report Type: 
  Country: None (occurrence: None)
  Receive Date: 20050627
  Receipt Date: 20050415
  Transmission Date: 20051028
  Serious: Yes (Life-Threatening, Hospitalization)
  Sender: FDA-Public Use
  Company Number: 2005SE02217

PATIENT
  Age: 55 Year
  Sex: Male
  Weight: 70 kg

DRUGS (4)
  1. ATACAND [Suspect]
     Indication: HYPERTENSION
     Route: 048
     Dates: start: 20040601, end: 20050322
  2. METOPROLOL SUCCINATE [Concomitant]
     Indication: HYPERTONIA
     Route: 048
     Dates: start: 20040601
  3. PLENDIL [Concomitant]
     Indication: HYPERTONIA
     Route: 048
     Dates: start: 20040601, end: 20050322
  4. DIUREX MITE [Concomitant]
     Indication: HYPERTONIA
     Route: 048
     Dates: start: 20040601, end: 20050322

REACTIONS (1)
  - HEPATIC NECROSIS [None]
